FAERS Safety Report 8026118-2 (Version None)
Quarter: 2012Q1

REPORT INFORMATION
  Report Type: 
  Country: None (occurrence: None)
  Receive Date: 20120105
  Receipt Date: 20110622
  Transmission Date: 20120608
  Serious: No
  Sender: FDA-Public Use
  Company Number: US-ABBOTT-11P-163-0734792-00

PATIENT
  Sex: Female
  Weight: 97.61 kg

DRUGS (3)
  1. SYNTHROID [Suspect]
     Dates: start: 20110301, end: 20110601
  2. SYNTHROID [Suspect]
     Indication: HYPOTHYROIDISM
     Dates: start: 20070101, end: 20110301
  3. SYNTHROID [Suspect]
     Dates: start: 20110601

REACTIONS (7)
  - DRUG INEFFECTIVE [None]
  - ARTHRALGIA [None]
  - FATIGUE [None]
  - FEELING ABNORMAL [None]
  - MYALGIA [None]
  - ASTHENIA [None]
  - PAIN [None]
